FAERS Safety Report 8776203 (Version 1)
Quarter: 2012Q4

REPORT INFORMATION
  Report Type: 
  Country: US (occurrence: US)
  Receive Date: 20120910
  Receipt Date: 20120910
  Transmission Date: 20130627
  Serious: Yes (Hospitalization)
  Sender: FDA-Public Use
  Company Number: US-MYLANLABS-2012S1018305

PATIENT
  Age: 57 Year
  Sex: Male

DRUGS (9)
  1. AMIODARONE [Suspect]
     Indication: ATRIAL FIBRILLATION
     Dosage: 150 mg loading dose over 10 mins
     Route: 042
  2. AMIODARONE [Suspect]
     Indication: ATRIAL FIBRILLATION
     Dosage: 1 mg/min for 6 hours
     Route: 042
  3. AMIODARONE [Suspect]
     Indication: ATRIAL FIBRILLATION
     Dosage: 0.5 mg/min
     Route: 042
  4. CEFUROXIME [Suspect]
     Route: 065
  5. HYDRALAZINE [Suspect]
     Route: 065
  6. PARACETAMOL [Suspect]
     Route: 065
  7. METOPROLOL [Concomitant]
  8. PHENYLEPHRINE [Concomitant]
     Indication: HYPOTENSION
     Dosage: Up to 100 microg/min
     Route: 065
  9. NOREPINEPHRINE [Concomitant]
     Indication: HYPOTENSION
     Dosage: Up to 10 microg/min
     Route: 065

REACTIONS (3)
  - Drug-induced liver injury [Recovering/Resolving]
  - Hypotension [Recovered/Resolved]
  - Acute hepatic failure [Recovering/Resolving]
